FAERS Safety Report 8344363 (Version 12)
Quarter: 2013Q1

REPORT INFORMATION
  Report Type: Spontaneous
  Country: US (occurrence: US)
  Receive Date: 20120119
  Receipt Date: 20130111
  Transmission Date: 20140127
  Serious: Yes (Life-Threatening, Hospitalization, Other)
  Sender: FDA-Public Use
  Company Number: PHEH2012US001160

PATIENT
  Age: 50 Year
  Sex: Male

DRUGS (2)
  1. GILENYA [Suspect]
     Indication: MULTIPLE SCLEROSIS
     Dosage: 0.5 MG, QD
     Route: 048
     Dates: start: 201109, end: 20120107
  2. ACYCLOVIR [Suspect]
     Indication: HERPES ZOSTER
     Route: 042

REACTIONS (34)
  - Coma [Recovering/Resolving]
  - Status epilepticus [Recovered/Resolved]
  - Grand mal convulsion [Recovering/Resolving]
  - Mental status changes [Recovering/Resolving]
  - Herpes simplex meningoencephalitis [Recovering/Resolving]
  - CSF test abnormal [Recovering/Resolving]
  - CSF virus identified [Recovering/Resolving]
  - CSF protein increased [Unknown]
  - Psychomotor skills impaired [Unknown]
  - Central nervous system lesion [Recovering/Resolving]
  - Swelling [Unknown]
  - Quadriparesis [Unknown]
  - Viral vasculitis [Recovering/Resolving]
  - Herpes zoster [Recovering/Resolving]
  - Herpes dermatitis [Recovering/Resolving]
  - Hemiparesis [Not Recovered/Not Resolved]
  - Renal failure [Recovered/Resolved]
  - Haemodynamic instability [Unknown]
  - Blood urea increased [Recovering/Resolving]
  - Blood creatinine increased [Recovering/Resolving]
  - Pancreatitis [Recovered/Resolved]
  - Pneumonia [Unknown]
  - Arachnoid cyst [Unknown]
  - Mastoid effusion [Unknown]
  - Vertebral artery hypoplasia [Unknown]
  - Subdural haematoma [Unknown]
  - Lymphopenia [Recovering/Resolving]
  - Dysphagia [Unknown]
  - Fatigue [Unknown]
  - Blood pressure decreased [Recovering/Resolving]
  - Muscular weakness [Recovering/Resolving]
  - Mobility decreased [Unknown]
  - Sinusitis [Recovering/Resolving]
  - Asthenia [Unknown]
